FAERS Safety Report 4288956-1 (Version None)
Quarter: 2004Q1

REPORT INFORMATION
  Report Type: 
  Country: None (occurrence: None)
  Receive Date: 20040206
  Receipt Date: 20040122
  Transmission Date: 20041129
  Serious: Yes (Life-Threatening, Hospitalization)
  Sender: FDA-Public Use
  Company Number: APP200400085

PATIENT
  Age: 66 Year
  Sex: Male

DRUGS (9)
  1. FLUOROURACIL INJ [Suspect]
     Indication: COLON CANCER STAGE III
     Dosage: 1000 MG, 1 IN 1 D, INJECTION
     Dates: start: 20031208, end: 20031212
  2. LEUCOVORIN (FOLINIC 5D ACID) [Concomitant]
  3. RANITIDINE [Concomitant]
  4. FLUNISOLIDE (FLUNISOLIDE) [Concomitant]
  5. HYDROCORTISONE CREAM (HYDROCORTISONE) [Concomitant]
  6. CALCIUM WITH VITAMIN D (CALCIUM WITH VITAMIN D) [Concomitant]
  7. FERROUS SULFATE TAB [Concomitant]
  8. G-CSF (GRANULOCYTE COLONY STIMULATING FACTOR) [Concomitant]
  9. ONDANSETRON HCL [Concomitant]

REACTIONS (4)
  - EMPYEMA [None]
  - MUCOSAL INFLAMMATION [None]
  - NEUTROPENIA [None]
  - PNEUMONIA STAPHYLOCOCCAL [None]
